FAERS Safety Report 6424005-4 (Version None)
Quarter: 2009Q4

REPORT INFORMATION
  Report Type: 
  Country: None (occurrence: None)
  Receive Date: 20091030
  Receipt Date: 20091030
  Transmission Date: 20100525
  Serious: Yes (Other)
  Sender: FDA-Public Use
  Company Number: None

PATIENT
  Age: 14 Year
  Sex: Female
  Weight: 63.9572 kg

DRUGS (1)
  1. RISPERIDONE [Suspect]
     Indication: AFFECTIVE DISORDER
     Dosage: 2 MG TWICE DAILY PO
     Route: 048
     Dates: start: 20090415, end: 20090722

REACTIONS (4)
  - ATTENTION DEFICIT/HYPERACTIVITY DISORDER [None]
  - BIPOLAR DISORDER [None]
  - OPPOSITIONAL DEFIANT DISORDER [None]
  - SUBSTANCE ABUSE [None]
